FAERS Safety Report 10426822 (Version 1)
Quarter: 2014Q3

REPORT INFORMATION
  Report Type: Spontaneous
  Country: US (occurrence: US)
  Receive Date: 20140903
  Receipt Date: 20140903
  Transmission Date: 20150326
  Serious: No
  Sender: FDA-Public Use
  Company Number: US-BANPHARM-20131726

PATIENT
  Age: 80 Year
  Sex: Male
  Weight: 90.72 kg

DRUGS (1)
  1. ZYRTEC [Suspect]
     Active Substance: CETIRIZINE HYDROCHLORIDE
     Indication: DIZZINESS
     Dosage: 1 DF, PRN,
     Route: 048
     Dates: start: 20130828

REACTIONS (4)
  - Drug effect incomplete [Unknown]
  - Sneezing [Recovered/Resolved]
  - Lacrimation increased [Recovered/Resolved]
  - Rhinorrhoea [Recovered/Resolved]
